FAERS Safety Report 5958459-4 (Version None)
Quarter: 2008Q4

REPORT INFORMATION
  Report Type: 
  Country: None (occurrence: None)
  Receive Date: 20081119
  Receipt Date: 20081117
  Transmission Date: 20090506
  Serious: Yes (Other)
  Sender: FDA-Public Use
  Company Number: US-ASTRAZENECA-2008UW19258

PATIENT
  Age: 19162 Day
  Sex: Male
  Weight: 82.6 kg

DRUGS (11)
  1. CRESTOR [Suspect]
     Indication: BLOOD CHOLESTEROL INCREASED
     Route: 048
     Dates: start: 20080108
  2. CRESTOR [Suspect]
     Indication: DYSLIPIDAEMIA
     Route: 048
     Dates: start: 20080108
  3. CRESTOR [Suspect]
     Dosage: 20 MG
     Route: 048
     Dates: start: 20080630
  4. CRESTOR [Suspect]
     Dosage: 20 MG
     Route: 048
     Dates: start: 20080630
  5. CRESTOR [Suspect]
     Route: 048
  6. CRESTOR [Suspect]
     Route: 048
  7. LEVOTHYROXINE SODIUM [Concomitant]
  8. ASPIRIN [Concomitant]
  9. AMBIEN CR [Concomitant]
  10. FISH OIL [Concomitant]
  11. MULTI-VITAMIN [Concomitant]

REACTIONS (8)
  - ALANINE AMINOTRANSFERASE INCREASED [None]
  - ARTHRALGIA [None]
  - ASPARTATE AMINOTRANSFERASE INCREASED [None]
  - DISORIENTATION [None]
  - FEELING ABNORMAL [None]
  - MYALGIA [None]
  - PAIN [None]
  - UPPER RESPIRATORY TRACT CONGESTION [None]
